FAERS Safety Report 13012755 (Version 1)
Quarter: 2016Q4

REPORT INFORMATION
  Report Type: Spontaneous
  Country: US (occurrence: US)
  Receive Date: 20161209
  Receipt Date: 20161209
  Transmission Date: 20170207
  Serious: No
  Sender: FDA-Public Use
  Company Number: US-TEVA-707015USA

PATIENT
  Sex: Female

DRUGS (1)
  1. DORZOLAMIDE W/TIMOLOL [Suspect]
     Active Substance: DORZOLAMIDE HYDROCHLORIDE\TIMOLOL MALEATE
     Indication: INTRAOCULAR PRESSURE INCREASED
     Dosage: 2/0.5% SOLUTION

REACTIONS (2)
  - Nausea [Unknown]
  - Gastric disorder [Unknown]
